FAERS Safety Report 8953374 (Version 1)
Quarter: 2012Q4

REPORT INFORMATION
  Report Type: 
  Country: FR (occurrence: FR)
  Receive Date: 20121206
  Receipt Date: 20121206
  Transmission Date: 20130627
  Serious: Yes (Hospitalization)
  Sender: FDA-Public Use
  Company Number: FR-BAYER-2012-124712

PATIENT
  Age: 42 Year
  Sex: Female

DRUGS (6)
  1. CIFLOX [Suspect]
     Dosage: UNK
     Dates: start: 20120405, end: 20120515
  2. TAZOCILLINE [Suspect]
     Dosage: 4 g, TID
     Route: 042
     Dates: start: 20120403, end: 20120405
  3. TAZOCILLINE [Suspect]
     Dosage: UNK
     Dates: start: 20120411, end: 20120515
  4. LYRICA [Concomitant]
     Dosage: UNK
     Dates: start: 201112
  5. EFFEXOR [Concomitant]
     Dosage: UNK
     Dates: start: 20120419
  6. TOBRAMYCIN [Concomitant]
     Dosage: UNK
     Dates: start: 20120514

REACTIONS (1)
  - Drug reaction with eosinophilia and systemic symptoms [Recovered/Resolved]
